FAERS Safety Report 5362893-3 (Version None)
Quarter: 2007Q2

REPORT INFORMATION
  Report Type: 
  Country: None (occurrence: None)
  Receive Date: 20070615
  Receipt Date: 20070601
  Transmission Date: 20071010
  Serious: Yes (Hospitalization)
  Sender: FDA-Public Use
  Company Number: POMP-11024

PATIENT
  Age: 34 Week
  Sex: Male

DRUGS (6)
  1. MYOZYME [Suspect]
     Indication: GLYCOGEN STORAGE DISEASE TYPE II
     Dosage: 150 MG Q2WKS IV
     Route: 042
     Dates: start: 20070109
  2. LASIX. MFR: HOECHST PHARMACEUTICALS, INCORPORATED [Concomitant]
  3. ENALAPRIL [Concomitant]
  4. XOPENEX. MFR: SEPRACOR PRODUCT [Concomitant]
  5. PULMICORT. MFR: ASTRA PHARMACEUTICAL PRODUCTS [Concomitant]
  6. PREVACID. MFR: TAP PHARMACEUTICALS INC. [Concomitant]

REACTIONS (7)
  - INFLUENZA [None]
  - LEFT VENTRICULAR HYPERTROPHY [None]
  - MUSCULAR WEAKNESS [None]
  - PNEUMONIA ASPIRATION [None]
  - RESPIRATORY FAILURE [None]
  - RESPIRATORY TRACT INFECTION VIRAL [None]
  - UPPER RESPIRATORY TRACT INFECTION [None]
